FAERS Safety Report 8281052 (Version 4)
Quarter: 2015Q3

REPORT INFORMATION
  Report Type: Spontaneous
  Country: US (occurrence: US)
  Receive Date: 20111208
  Receipt Date: 20150915
  Transmission Date: 20151125
  Serious: Yes (Hospitalization, Other)
  Sender: FDA-Public Use
  Company Number: US-ASTRAZENECA-2010SE23990

PATIENT
  Age: 27671 Day
  Sex: Female
  Weight: 68 kg

DRUGS (10)
  1. LISINOPRIL. [Suspect]
     Active Substance: LISINOPRIL
     Indication: HYPERTENSION
     Route: 048
  2. ASPIRIN. [Concomitant]
     Active Substance: ASPIRIN
     Route: 048
  3. CRESTOR [Suspect]
     Active Substance: ROSUVASTATIN CALCIUM
     Indication: BLOOD CHOLESTEROL INCREASED
     Dosage: SPLIT THE TABLETS IN HALF AND TAKING 10MG
     Route: 048
     Dates: end: 20150906
  4. TRAZODONE [Concomitant]
     Active Substance: TRAZODONE HYDROCHLORIDE
     Indication: SLEEP DISORDER
     Route: 048
  5. XANAX [Concomitant]
     Active Substance: ALPRAZOLAM
     Dosage: QD
     Route: 048
  6. AROMACIN [Concomitant]
     Indication: BREAST CANCER
     Route: 048
  7. PERCOCET [Concomitant]
     Active Substance: ACETAMINOPHEN\OXYCODONE HYDROCHLORIDE
  8. CRESTOR [Suspect]
     Active Substance: ROSUVASTATIN CALCIUM
     Indication: BLOOD CHOLESTEROL INCREASED
     Route: 048
     Dates: start: 2013
  9. CITALOPRAM [Concomitant]
     Active Substance: CITALOPRAM HYDROBROMIDE
     Indication: NEURALGIA
     Route: 048
  10. CRESTOR [Suspect]
     Active Substance: ROSUVASTATIN CALCIUM
     Indication: BLOOD CHOLESTEROL INCREASED
     Dosage: QD
     Route: 048
     Dates: end: 201311

REACTIONS (11)
  - Rheumatoid arthritis [Unknown]
  - Blood calcium increased [Unknown]
  - Drug dose omission [Not Recovered/Not Resolved]
  - Breast cancer female [Unknown]
  - Neoplasm malignant [Unknown]
  - Blood cholesterol increased [Recovering/Resolving]
  - Intentional product misuse [Unknown]
  - Irritability [Unknown]
  - Plasma cell myeloma [Unknown]
  - Fibromyalgia [Unknown]
  - Hypertension [Unknown]

NARRATIVE: CASE EVENT DATE: 2013
